FAERS Safety Report 7296557-6 (Version None)
Quarter: 2011Q1

REPORT INFORMATION
  Report Type: 
  Country: None (occurrence: None)
  Receive Date: 20110216
  Receipt Date: 20110207
  Transmission Date: 20110831
  Serious: Yes (Other)
  Sender: FDA-Public Use
  Company Number: PHHO2010JP15796

PATIENT
  Sex: Male
  Weight: 51 kg

DRUGS (10)
  1. CYCLOPHOSPHAMIDE [Concomitant]
  2. EVEROLIMUS [Suspect]
     Indication: NON-HODGKIN'S LYMPHOMA
     Dosage: 5 MG, QD
     Route: 048
     Dates: start: 20080630, end: 20100930
  3. DOXORUBICIN HYDROCHLORIDE [Concomitant]
  4. PERAZOLIN [Concomitant]
  5. PENFILL R [Concomitant]
  6. VINCRISTINE SULFATE [Concomitant]
  7. LASTET [Concomitant]
  8. ETOPOSIDE [Concomitant]
  9. LEUSTATIN [Concomitant]
  10. RITUXAN [Concomitant]

REACTIONS (5)
  - SALIVARY GLAND NEOPLASM [None]
  - BURKITT'S LYMPHOMA [None]
  - SENSORY DISTURBANCE [None]
  - LUNG NEOPLASM [None]
  - LEUKAEMIC INFILTRATION GINGIVA [None]
